FAERS Safety Report 18134232 (Version 1)
Quarter: 2020Q3

REPORT INFORMATION
  Report Type: Spontaneous
  Country: US (occurrence: US)
  Receive Date: 20200811
  Receipt Date: 20200811
  Transmission Date: 20201103
  Serious: Yes (Hospitalization)
  Sender: FDA-Public Use
  Company Number: US-JNJFOC-20200804091

PATIENT
  Age: 81 Year
  Sex: Male
  Weight: 68.1 kg

DRUGS (3)
  1. ZYTIGA [Suspect]
     Active Substance: ABIRATERONE ACETATE
     Route: 048
  2. ZYTIGA [Suspect]
     Active Substance: ABIRATERONE ACETATE
     Route: 048
  3. ZYTIGA [Suspect]
     Active Substance: ABIRATERONE ACETATE
     Indication: PRODUCT USED FOR UNKNOWN INDICATION
     Route: 048

REACTIONS (10)
  - Dizziness [Unknown]
  - Vertigo [Unknown]
  - Weight decreased [Unknown]
  - Prostatic specific antigen abnormal [Not Recovered/Not Resolved]
  - Amnesia [Not Recovered/Not Resolved]
  - Fall [Recovered/Resolved]
  - Belligerence [Recovered/Resolved]
  - Atrioventricular block [Unknown]
  - Wrong technique in product usage process [Unknown]
  - Heart rate increased [Unknown]
